FAERS Safety Report 20793920 (Version 3)
Quarter: 2022Q2

REPORT INFORMATION
  Report Type: Spontaneous
  Country: US (occurrence: US)
  Receive Date: 20220506
  Receipt Date: 20220623
  Transmission Date: 20220720
  Serious: No
  Sender: FDA-Public Use
  Company Number: US-LUPIN PHARMACEUTICALS INC.-2022-06732

PATIENT
  Age: 72 Year
  Sex: Female
  Weight: 68.027 kg

DRUGS (6)
  1. CEPHALEXIN [Suspect]
     Active Substance: CEPHALEXIN
     Indication: Urinary tract infection
     Dosage: 4 DOSAGE FORM, QD,
     Route: 065
     Dates: start: 20220405
  2. CEPHALEXIN [Suspect]
     Active Substance: CEPHALEXIN
     Dosage: 1 DOSAGE FORM, QD
     Route: 048
     Dates: start: 20220425
  3. CEPHALEXIN [Suspect]
     Active Substance: CEPHALEXIN
     Dosage: 4 DOSAGE FORM, QD
     Route: 048
     Dates: start: 20220426
  4. CEPHALEXIN [Suspect]
     Active Substance: CEPHALEXIN
     Dosage: 4 DOSAGE FORM, QD
     Route: 048
     Dates: start: 20220427
  5. CEPHALEXIN [Suspect]
     Active Substance: CEPHALEXIN
     Dosage: 2 DOSAGE FORM, QD
     Route: 048
     Dates: start: 20220428
  6. PROBIOTICS NOS [Concomitant]
     Active Substance: PROBIOTICS NOS
     Indication: Product used for unknown indication
     Dosage: UNK
     Route: 065
     Dates: start: 20220425, end: 20220426

REACTIONS (4)
  - Drug ineffective [Unknown]
  - Poor quality product administered [Unknown]
  - Product odour abnormal [Unknown]
  - Product taste abnormal [Unknown]
